FAERS Safety Report 6600610-7 (Version None)
Quarter: 2010Q1

REPORT INFORMATION
  Report Type: 
  Country: None (occurrence: None)
  Receive Date: 20100224
  Receipt Date: 20100217
  Transmission Date: 20100710
  Serious: Yes (Hospitalization)
  Sender: FDA-Public Use
  Company Number: US-AMGEN-QUU393275

PATIENT
  Sex: Male

DRUGS (5)
  1. ENBREL [Suspect]
     Indication: PSORIATIC ARTHROPATHY
     Route: 058
     Dates: start: 20030901
  2. ENBREL [Suspect]
     Indication: PSORIASIS
  3. CYCLOSPORINE [Concomitant]
  4. REMICADE [Concomitant]
     Dates: start: 20091101
  5. STELARA [Concomitant]

REACTIONS (3)
  - ARTHRITIS [None]
  - DRUG INEFFECTIVE [None]
  - HYPERTENSION [None]
